FAERS Safety Report 6660114-2 (Version None)
Quarter: 2010Q1

REPORT INFORMATION
  Report Type: 
  Country: None (occurrence: None)
  Receive Date: 20100331
  Receipt Date: 20100224
  Transmission Date: 20100710
  Serious: No
  Sender: FDA-Public Use
  Company Number: 2009BI003230

PATIENT
  Age: 33 Year
  Sex: Female

DRUGS (1)
  1. TYSABRI [Suspect]
     Indication: MULTIPLE SCLEROSIS
     Route: 042
     Dates: start: 20081027, end: 20090108

REACTIONS (12)
  - ANXIETY [None]
  - APHASIA [None]
  - BIPOLAR DISORDER [None]
  - FALL [None]
  - FATIGUE [None]
  - HYPOAESTHESIA [None]
  - JOINT INJURY [None]
  - MULTIPLE SCLEROSIS [None]
  - MULTIPLE SCLEROSIS RELAPSE [None]
  - SECONDARY PROGRESSIVE MULTIPLE SCLEROSIS [None]
  - VISION BLURRED [None]
  - VISUAL FIELD DEFECT [None]
